FAERS Safety Report 5339848-8 (Version None)
Quarter: 2007Q2

REPORT INFORMATION
  Report Type: 
  Country: None (occurrence: None)
  Receive Date: 20070529
  Receipt Date: 20070514
  Transmission Date: 20071010
  Serious: Yes (Death, Hospitalization)
  Sender: FDA-Public Use
  Company Number: 2007RR-07608

PATIENT
  Age: 80 Year
  Sex: Female

DRUGS (1)
  1. SIMVASTATIN [Suspect]
     Dosage: 40 MG

REACTIONS (2)
  - MULTI-ORGAN FAILURE [None]
  - RHABDOMYOLYSIS [None]
